FAERS Safety Report 5042474-1 (Version None)
Quarter: 2006Q2

REPORT INFORMATION
  Report Type: 
  Country: None (occurrence: None)
  Receive Date: 20060627
  Receipt Date: 20060612
  Transmission Date: 20061013
  Serious: Yes (Life-Threatening, Hospitalization, Other)
  Sender: FDA-Public Use
  Company Number: HQWYE567830MAY06

PATIENT
  Age: 85 Year
  Sex: Male

DRUGS (1)
  1. CONTROLOC (PANTOPRAZOLE, UNSPEC) [Suspect]

REACTIONS (2)
  - HAEMOLYTIC ANAEMIA [None]
  - THERAPY NON-RESPONDER [None]
